FAERS Safety Report 6747696-7 (Version None)
Quarter: 2010Q2

REPORT INFORMATION
  Report Type: 
  Country: None (occurrence: None)
  Receive Date: 20100528
  Receipt Date: 20100525
  Transmission Date: 20101027
  Serious: Yes (Life-Threatening, Other)
  Sender: FDA-Public Use
  Company Number: PHHY2010JP11226

PATIENT
  Sex: Female
  Weight: 19 kg

DRUGS (23)
  1. NEORAL [Suspect]
     Indication: HISTIOCYTOSIS HAEMATOPHAGIC
     Dosage: 100 MG DAILY
     Route: 048
     Dates: start: 20090206, end: 20090209
  2. NEORAL [Suspect]
     Dosage: 140 MG DAILY
     Route: 048
     Dates: start: 20090210, end: 20090213
  3. NEORAL [Suspect]
     Dosage: 180 MG DAILY
     Route: 048
     Dates: start: 20090214, end: 20090216
  4. NEORAL [Suspect]
     Dosage: 220 MG DAILY
     Route: 048
     Dates: start: 20090217, end: 20090219
  5. PREDONINE [Concomitant]
     Indication: HISTIOCYTOSIS HAEMATOPHAGIC
     Dosage: 45 MG, UNK
     Route: 042
     Dates: start: 20090102
  6. PREDONINE [Concomitant]
     Dosage: 30 MG, UNK
     Route: 042
  7. PREDONINE [Concomitant]
     Dosage: 20 MG, UNK
     Route: 042
  8. PREDONINE [Concomitant]
     Dosage: 15 MG, UNK
     Route: 042
  9. PREDONINE [Concomitant]
     Dosage: 15 MG, UNK
     Route: 042
  10. PREDONINE [Concomitant]
     Dosage: 10 MG, UNK
     Route: 042
     Dates: end: 20090604
  11. PREDONINE [Concomitant]
     Dosage: 5 MG, UNK
     Route: 048
     Dates: start: 20090606
  12. PREDONINE [Concomitant]
     Dosage: 2.5 MG, UNK
     Route: 048
  13. PREDONINE [Concomitant]
     Dosage: 1.5 MG, UNK
     Route: 048
     Dates: end: 20090628
  14. DECADRON [Concomitant]
     Indication: HISTIOCYTOSIS HAEMATOPHAGIC
     Dosage: 7 MG, UNK
     Route: 042
     Dates: start: 20090201
  15. DECADRON [Concomitant]
     Dosage: 5 MG, UNK
     Route: 042
  16. DECADRON [Concomitant]
     Dosage: 4 MG, UNK
     Route: 042
  17. DECADRON [Concomitant]
     Dosage: 7 MG, UNK
     Route: 042
  18. DECADRON [Concomitant]
     Dosage: 6 MG, UNK
     Route: 042
  19. DECADRON [Concomitant]
     Dosage: 4 MG, UNK
     Route: 042
  20. DECADRON [Concomitant]
     Dosage: 3.5 MG, UNK
     Route: 042
  21. DECADRON [Concomitant]
     Dosage: 3 MG, UNK
     Route: 042
  22. DECADRON [Concomitant]
     Dosage: 2.5 MG, UNK
     Route: 042
  23. DECADRON [Concomitant]
     Dosage: 2 MG, UNK
     Route: 042
     Dates: end: 20090503

REACTIONS (26)
  - ALANINE AMINOTRANSFERASE INCREASED [None]
  - ALTERED STATE OF CONSCIOUSNESS [None]
  - ASPARTATE AMINOTRANSFERASE INCREASED [None]
  - BLOOD CREATININE DECREASED [None]
  - BLOOD LACTATE DEHYDROGENASE INCREASED [None]
  - BLOOD UREA DECREASED [None]
  - C-REACTIVE PROTEIN INCREASED [None]
  - CONVULSION [None]
  - ENDOTRACHEAL INTUBATION [None]
  - EXTUBATION [None]
  - EYE MOVEMENT DISORDER [None]
  - GAMMA-GLUTAMYLTRANSFERASE INCREASED [None]
  - HAEMATOCRIT DECREASED [None]
  - HAEMATOCRIT INCREASED [None]
  - HAEMOGLOBIN DECREASED [None]
  - MECHANICAL VENTILATION [None]
  - MUSCULAR WEAKNESS [None]
  - NEUTROPHIL COUNT INCREASED [None]
  - PLATELET COUNT INCREASED [None]
  - PUPILLARY REFLEX IMPAIRED [None]
  - RED BLOOD CELL COUNT INCREASED [None]
  - RESPIRATORY DISORDER [None]
  - REVERSIBLE POSTERIOR LEUKOENCEPHALOPATHY SYNDROME [None]
  - SERUM FERRITIN INCREASED [None]
  - UNRESPONSIVE TO STIMULI [None]
  - WHITE BLOOD CELL COUNT DECREASED [None]
